FAERS Safety Report 6695906-7 (Version None)
Quarter: 2010Q2

REPORT INFORMATION
  Report Type: 
  Country: None (occurrence: None)
  Receive Date: 20100422
  Receipt Date: 20100422
  Transmission Date: 20101027
  Serious: Yes (Disabling, Other)
  Sender: FDA-Public Use
  Company Number: None

PATIENT
  Age: 51 Year
  Sex: Male
  Weight: 95.2554 kg

DRUGS (1)
  1. LEVOTHYROXINE SODIUM [Suspect]
     Indication: HYPOTHYROIDISM
     Dosage: 1 PILL DAILY PO
     Route: 048
     Dates: start: 20080901

REACTIONS (3)
  - ALOPECIA UNIVERSALIS [None]
  - DEFORMITY [None]
  - ONYCHOMADESIS [None]
